FAERS Safety Report 8166397-4 (Version None)
Quarter: 2012Q1

REPORT INFORMATION
  Report Type: 
  Country: None (occurrence: None)
  Receive Date: 20120227
  Receipt Date: 20110729
  Transmission Date: 20120608
  Serious: Yes (Other)
  Sender: FDA-Public Use
  Company Number: US-MYLANLABS-2011S1014570

PATIENT
  Age: 17 Year
  Sex: Male
  Weight: 71.22 kg

DRUGS (1)
  1. AMNESTEEM [Suspect]
     Indication: ACNE CYSTIC
     Route: 048
     Dates: start: 20110201, end: 20110511

REACTIONS (3)
  - MYALGIA [None]
  - RECTAL HAEMORRHAGE [None]
  - ARTHRALGIA [None]
